FAERS Safety Report 8985399 (Version 1)
Quarter: 2012Q4

REPORT INFORMATION
  Report Type: 
  Country: ES (occurrence: ES)
  Receive Date: 20121226
  Receipt Date: 20121226
  Transmission Date: 20130627
  Serious: Yes (Life-Threatening)
  Sender: FDA-Public Use
  Company Number: ES-WATSON-2012-22364

PATIENT
  Age: 40 Year
  Sex: Male

DRUGS (1)
  1. PROPAFENONE [Suspect]
     Indication: ATRIAL FIBRILLATION
     Dosage: UNK, unknown
     Route: 065

REACTIONS (2)
  - Acquired porphyria [Recovering/Resolving]
  - Inappropriate antidiuretic hormone secretion [Recovering/Resolving]
